FAERS Safety Report 9709411 (Version 2)
Quarter: 2013Q4

REPORT INFORMATION
  Report Type: Report from Study
  Country: DE (occurrence: DE)
  Receive Date: 20131126
  Receipt Date: 20131128
  Transmission Date: 20140711
  Serious: Yes (Other)
  Sender: FDA-Public Use
  Company Number: DE-ROCHE-1308279

PATIENT
  Sex: Male

DRUGS (4)
  1. RANIBIZUMAB [Suspect]
     Indication: AGE-RELATED MACULAR DEGENERATION
     Route: 050
     Dates: start: 20100602
  2. RANIBIZUMAB [Suspect]
     Route: 050
     Dates: start: 20121108
  3. RANIBIZUMAB [Suspect]
     Route: 050
     Dates: start: 20131107
  4. RANIBIZUMAB [Suspect]
     Dosage: PRN
     Route: 050
     Dates: start: 20120912

REACTIONS (4)
  - Retinal detachment [Unknown]
  - Retinal oedema [Unknown]
  - Retinal cyst [Unknown]
  - Visual acuity reduced [Unknown]
